FAERS Safety Report 14343989 (Version 1)
Quarter: 2018Q1

REPORT INFORMATION
  Report Type: Spontaneous
  Country: IT (occurrence: IT)
  Receive Date: 20180102
  Receipt Date: 20180102
  Transmission Date: 20180509
  Serious: Yes (Other)
  Sender: FDA-Public Use
  Company Number: IT-PFIZER INC-2017315087

PATIENT
  Age: 32 Year
  Sex: Female

DRUGS (3)
  1. BROMAZEPAM [Suspect]
     Active Substance: BROMAZEPAM
     Dosage: 1 DF, SINGLE
     Route: 048
     Dates: start: 20170711, end: 20170711
  2. DROPAXIN 10 MG/ML [Suspect]
     Active Substance: PAROXETINE HYDROCHLORIDE
     Dosage: 1 DF, SINGLE
     Route: 048
     Dates: start: 20170711, end: 20170711
  3. TAVOR (LORAZEPAM) [Suspect]
     Active Substance: LORAZEPAM
     Dosage: 1 DF, SINGLE
     Route: 048
     Dates: start: 20170711, end: 20170711

REACTIONS (3)
  - Drug abuse [Recovered/Resolved]
  - Abdominal discomfort [Recovered/Resolved]
  - Intentional self-injury [Recovered/Resolved]

NARRATIVE: CASE EVENT DATE: 20170711
